FAERS Safety Report 9106630 (Version 3)
Quarter: 2013Q1

REPORT INFORMATION
  Report Type: Spontaneous
  Country: FR (occurrence: FR)
  Receive Date: 20130221
  Receipt Date: 20130311
  Transmission Date: 20140127
  Serious: Yes (Other)
  Sender: FDA-Public Use
  Company Number: PHHY2013FR015987

PATIENT
  Age: 52 Year
  Sex: Female
  Weight: 55 kg

DRUGS (4)
  1. ONBREZ [Suspect]
     Indication: CHRONIC OBSTRUCTIVE PULMONARY DISEASE
     Dosage: 150 UG, QD
     Dates: start: 20130213
  2. PLAVIX [Concomitant]
     Dosage: UNK
     Dates: start: 19990101
  3. CHRONADALATE [Concomitant]
     Dosage: UNK
     Dates: start: 19990101
  4. PRAXILENE [Concomitant]
     Dosage: UNK
     Dates: start: 19990101

REACTIONS (1)
  - Angioedema [Recovered/Resolved]
